FAERS Safety Report 9639857 (Version 1)
Quarter: 2013Q4

REPORT INFORMATION
  Report Type: Spontaneous
  Country: SG (occurrence: SG)
  Receive Date: 20131023
  Receipt Date: 20131023
  Transmission Date: 20140711
  Serious: Yes (Other)
  Sender: FDA-Public Use
  Company Number: SG-009507513-1310SGP008582

PATIENT
  Age: 23 Year
  Sex: Male

DRUGS (2)
  1. ARCOXIA 60MG [Suspect]
     Route: 048
  2. OMEPRAZOLE [Suspect]
     Route: 048

REACTIONS (1)
  - Rash maculo-papular [Unknown]
